FAERS Safety Report 4436884-0 (Version None)
Quarter: 2004Q3

REPORT INFORMATION
  Report Type: 
  Country: None (occurrence: None)
  Receive Date: 20040830
  Receipt Date: 20040528
  Transmission Date: 20050211
  Serious: Yes (Death, Other)
  Sender: FDA-Public Use
  Company Number: PHBS2004JP07026

PATIENT
  Age: 78 Year
  Sex: Male
  Weight: 50 kg

DRUGS (2)
  1. NEORAL [Suspect]
     Indication: APLASTIC ANAEMIA
     Dosage: 300 MG/D
     Route: 048
     Dates: start: 20030314, end: 20030905
  2. LYMPHOGLOBULINE [Suspect]
     Indication: APLASTIC ANAEMIA
     Dosage: 500 MG/KG/D
     Dates: start: 20030602, end: 20030606

REACTIONS (5)
  - DISEASE PROGRESSION [None]
  - DRUG INEFFECTIVE [None]
  - OESOPHAGEAL CARCINOMA RECURRENT [None]
  - PNEUMONIA [None]
  - TUBERCULOSIS [None]
